FAERS Safety Report 7535992-5 (Version None)
Quarter: 2011Q2

REPORT INFORMATION
  Report Type: 
  Country: None (occurrence: None)
  Receive Date: 20110602
  Receipt Date: 20110526
  Transmission Date: 20111010
  Serious: Yes (Hospitalization)
  Sender: FDA-Public Use
  Company Number: 1000021180

PATIENT
  Age: 63 Year
  Sex: Female

DRUGS (5)
  1. METFORMIN HCL [Concomitant]
  2. LEVOXYL [Concomitant]
  3. ALDACTONE [Concomitant]
  4. TIAZAC [Suspect]
     Indication: HYPERTENSION
     Dosage: 360 (360 MG, 1 IN 1 D), ORAL
     Route: 048
     Dates: start: 20110301
  5. WARFARIN SODIUM [Concomitant]

REACTIONS (4)
  - COUGH [None]
  - BLOOD PRESSURE INCREASED [None]
  - DIZZINESS [None]
  - INCREASED UPPER AIRWAY SECRETION [None]
